FAERS Safety Report 7201017-4 (Version None)
Quarter: 2010Q4

REPORT INFORMATION
  Report Type: 
  Country: None (occurrence: None)
  Receive Date: 20101228
  Receipt Date: 20101217
  Transmission Date: 20110411
  Serious: No
  Sender: FDA-Public Use
  Company Number: US-MYLANLABS-2010S1018895

PATIENT
  Age: 4 Year
  Sex: Female
  Weight: 14.52 kg

DRUGS (3)
  1. PROPRANOLOL HYDROCHLORIDE [Suspect]
     Indication: HEADACHE
     Dosage: 10MG TABLETS CUT INTO FOURTHS TO MAKE 2.5MG
     Route: 048
     Dates: start: 20100916, end: 20100927
  2. ZYRTEC [Concomitant]
  3. NASONEX [Concomitant]

REACTIONS (6)
  - ABDOMINAL PAIN [None]
  - ANXIETY [None]
  - BACK PAIN [None]
  - MYDRIASIS [None]
  - PUPILS UNEQUAL [None]
  - VISION BLURRED [None]
